FAERS Safety Report 6575477-6 (Version None)
Quarter: 2010Q1

REPORT INFORMATION
  Report Type: 
  Country: None (occurrence: None)
  Receive Date: 20100209
  Receipt Date: 20100128
  Transmission Date: 20100710
  Serious: Yes (Other)
  Sender: FDA-Public Use
  Company Number: US-PFIZER INC-2010012786

PATIENT
  Sex: Female
  Weight: 63.502 kg

DRUGS (4)
  1. AZITHROMYCIN [Suspect]
     Indication: PNEUMONIA
     Dosage: 250 MG, 2X/DAY
     Route: 048
     Dates: start: 20100125, end: 20100128
  2. TOPROL-XL [Concomitant]
     Dosage: UNK
  3. NORVASC [Concomitant]
     Dosage: UNK
  4. PREVACID [Concomitant]
     Dosage: 15 MG, UNK

REACTIONS (5)
  - GASTROINTESTINAL DISORDER [None]
  - HYPERTENSION [None]
  - MALAISE [None]
  - PAIN [None]
  - VERTIGO [None]
